FAERS Safety Report 11069763 (Version 5)
Quarter: 2015Q2

REPORT INFORMATION
  Report Type: Report from Study
  Country: CA (occurrence: CA)
  Receive Date: 20150427
  Receipt Date: 20150622
  Transmission Date: 20150821
  Serious: Yes (Death, Other)
  Sender: FDA-Public Use
  Company Number: CA-GILEAD-2015-0150585

PATIENT
  Age: 50 Year
  Sex: Female
  Weight: 51.8 kg

DRUGS (6)
  1. OXYCODONE [Suspect]
     Active Substance: OXYCODONE
     Indication: PRODUCT USED FOR UNKNOWN INDICATION
     Route: 065
  2. LEDIPASVIR/SOFOSBUVIR [Suspect]
     Active Substance: LEDIPASVIR\SOFOSBUVIR
     Indication: CHRONIC HEPATITIS C
     Dosage: 1 DF, QD
     Route: 048
     Dates: start: 20150131
  3. HEROIN [Suspect]
     Active Substance: DIACETYLMORPHINE
     Indication: PRODUCT USED FOR UNKNOWN INDICATION
     Route: 065
  4. ALCOHOL. [Suspect]
     Active Substance: ALCOHOL
     Indication: PRODUCT USED FOR UNKNOWN INDICATION
     Route: 065
  5. OXYMORPHONE [Suspect]
     Active Substance: OXYMORPHONE
     Indication: PRODUCT USED FOR UNKNOWN INDICATION
     Route: 065
  6. SPIRONOLACTONE. [Concomitant]
     Active Substance: SPIRONOLACTONE
     Indication: PRODUCT USED FOR UNKNOWN INDICATION
     Route: 065

REACTIONS (2)
  - Alcohol poisoning [Fatal]
  - Toxicity to various agents [Fatal]

NARRATIVE: CASE EVENT DATE: 20150320
